FAERS Safety Report 10055153 (Version 1)
Quarter: 2014Q2

REPORT INFORMATION
  Report Type: Spontaneous
  Country: FR (occurrence: FR)
  Receive Date: 20140402
  Receipt Date: 20140402
  Transmission Date: 20141212
  Serious: Yes (Hospitalization)
  Sender: FDA-Public Use
  Company Number: PHHY2014FR038470

PATIENT
  Age: 45 Year
  Sex: Female

DRUGS (20)
  1. ONBREZ [Suspect]
     Indication: ASTHMA
     Dosage: 300 UG, QD
     Route: 055
     Dates: end: 20131109
  2. BACLOFEN [Suspect]
     Indication: ALCOHOL ABUSE
     Dosage: 40 MG, QID
     Route: 048
     Dates: start: 2013, end: 20131109
  3. COVERSYL [Suspect]
     Indication: HYPERTENSION
     Dosage: 10 MG, QD
     Route: 048
     Dates: start: 2012, end: 20131109
  4. HYDROCORTISONE [Suspect]
     Dosage: 500 MG, QD
     Route: 042
     Dates: start: 20131106, end: 20131109
  5. ZOPHREN [Suspect]
     Dosage: 4 MG, TID
     Route: 048
     Dates: start: 20131106, end: 20131110
  6. PROFENID [Suspect]
     Dosage: 200 MG, QD
     Route: 048
     Dates: start: 20131107, end: 20131112
  7. PROZAC [Concomitant]
     Dosage: 20 MG, UNK
     Dates: end: 20131109
  8. LYSANXIA [Concomitant]
     Dosage: 10 MG, UNK
     Dates: end: 20131109
  9. ZOLPIDEM [Concomitant]
     Dosage: 10 MG, UNK
     Dates: end: 20131109
  10. ATRACURIUM HOSPIRA [Concomitant]
     Dosage: 50 MG, ONCE/SINGLE
     Dates: start: 20131106, end: 20131106
  11. DIPRIVAN [Concomitant]
     Dosage: UNK UKN, UNK
     Dates: start: 20131106, end: 20131106
  12. REMIFENTANIL MYLAN [Concomitant]
     Dosage: UNK UKN, UNK
     Dates: start: 20131106, end: 20131106
  13. EPHEDRINE [Concomitant]
     Indication: RASH
     Dosage: UNK UKN, UNK
     Dates: start: 20131106, end: 20131106
  14. SALINE [Concomitant]
     Indication: ANGIOPATHY
     Dosage: UNK UKN, UNK
     Dates: start: 20131106, end: 20131106
  15. SALINE [Concomitant]
     Indication: HYPOTENSION
  16. SOLUMEDROL [Concomitant]
     Indication: TACHYCARDIA
     Dosage: UNK UKN, UNK
     Dates: start: 20131106, end: 20131106
  17. TERBUTALINE ARROW [Concomitant]
     Dosage: UNK
     Dates: start: 20131106
  18. IPRATROPIUM ARROW [Concomitant]
     Dosage: UNK UKN, UNK
     Dates: start: 20131106
  19. ACUPAN [Concomitant]
     Dosage: UNK
     Dates: start: 20131106, end: 20131110
  20. MORPHINE [Concomitant]
     Dosage: UNK UKN, UNK
     Route: 042
     Dates: start: 20131107

REACTIONS (1)
  - Acute interstitial pneumonitis [Recovered/Resolved]
